FAERS Safety Report 8545163-1 (Version None)
Quarter: 2012Q3

REPORT INFORMATION
  Report Type: 
  Country: None (occurrence: None)
  Receive Date: 20120727
  Receipt Date: 20120720
  Transmission Date: 20120928
  Serious: Yes (Other)
  Sender: FDA-Public Use
  Company Number: BR-ELI_LILLY_AND_COMPANY-BR201207006838

PATIENT
  Sex: Male
  Weight: 100 kg

DRUGS (2)
  1. DIOVAN [Concomitant]
     Dosage: UNK, UNKNOWN
     Route: 065
  2. CIALIS [Suspect]
     Dosage: 5 MG, UNKNOWN
     Route: 065
     Dates: start: 20120713

REACTIONS (3)
  - HYPERTENSIVE CRISIS [None]
  - RHINITIS [None]
  - NASAL CONGESTION [None]
